FAERS Safety Report 5314327-2 (Version None)
Quarter: 2007Q2

REPORT INFORMATION
  Report Type: 
  Country: None (occurrence: None)
  Receive Date: 20070502
  Receipt Date: 20070423
  Transmission Date: 20071010
  Serious: Yes (Hospitalization, Other)
  Sender: FDA-Public Use
  Company Number: US-JNJFOC-20070404734

PATIENT
  Age: 47 Year
  Sex: Male

DRUGS (21)
  1. PREZISTA [Suspect]
     Route: 048
  2. PREZISTA [Suspect]
     Indication: HIV INFECTION
     Route: 048
  3. MK0518 [Suspect]
     Route: 048
  4. MK0518 [Suspect]
     Indication: HIV INFECTION
     Route: 048
  5. RITONAVIR [Suspect]
     Route: 048
  6. RITONAVIR [Suspect]
     Indication: HIV INFECTION
     Route: 048
  7. TRUVADA [Suspect]
     Route: 048
  8. TRUVADA [Suspect]
     Indication: HIV INFECTION
     Route: 048
  9. AZITHROMYCIN [Concomitant]
     Route: 065
  10. FLUCONAZOLE [Concomitant]
     Route: 065
  11. NEULASTA [Concomitant]
     Route: 065
  12. VALCYTE [Concomitant]
     Route: 065
  13. AMBIEN [Concomitant]
     Route: 065
  14. ACETAMINOPHEN/HYDROCODONE BITARTRATE [Concomitant]
     Route: 065
  15. BACTRIM [Concomitant]
     Route: 065
  16. MARINOL [Concomitant]
     Route: 065
  17. PROBENECID [Concomitant]
     Route: 065
  18. SULFACETAMIDE [Concomitant]
     Route: 065
  19. VIAGRA [Concomitant]
     Route: 065
  20. DANIEL'S SOLUTION [Concomitant]
     Route: 065
  21. VISTIDE [Concomitant]
     Route: 065

REACTIONS (1)
  - IMMUNE RECONSTITUTION SYNDROME [None]
